FAERS Safety Report 6551144-X (Version None)
Quarter: 2010Q1

REPORT INFORMATION
  Report Type: 
  Country: None (occurrence: None)
  Receive Date: 20100121
  Receipt Date: 20100111
  Transmission Date: 20100710
  Serious: Yes (Hospitalization, Other)
  Sender: FDA-Public Use
  Company Number: 2010AP000010

PATIENT
  Age: 82 Year
  Sex: Male

DRUGS (6)
  1. RISPERIDONE [Suspect]
     Indication: AGITATION
     Dosage: 1 MG;QD
  2. LORAZEPAM [Concomitant]
  3. MEMANTINE HCL [Concomitant]
  4. RIVASTIGMINE TARTRATE [Concomitant]
  5. QUETIAPINE FUMARATE [Concomitant]
  6. ZOPICLONE (ZOPICLONE) [Concomitant]

REACTIONS (4)
  - CONDITION AGGRAVATED [None]
  - EATING DISORDER [None]
  - HALLUCINATION [None]
  - MALAISE [None]
